FAERS Safety Report 17683224 (Version 2)
Quarter: 2020Q2

REPORT INFORMATION
  Report Type: Spontaneous
  Country: CN (occurrence: CN)
  Receive Date: 20200420
  Receipt Date: 20200504
  Transmission Date: 20200714
  Serious: Yes (Other)
  Sender: FDA-Public Use
  Company Number: CN-DRREDDYS-GPV/CHN/20/0121998

PATIENT
  Sex: Female

DRUGS (3)
  1. OLANZ [Suspect]
     Active Substance: OLANZAPINE
     Indication: HALLUCINATION, AUDITORY
     Route: 048
     Dates: start: 202001, end: 20200415
  2. OLANZ [Suspect]
     Active Substance: OLANZAPINE
     Indication: SUSPICIOUSNESS
  3. OLANZ [Suspect]
     Active Substance: OLANZAPINE
     Indication: COMPULSIONS
     Route: 048
     Dates: start: 20200415

REACTIONS (2)
  - Weight increased [Unknown]
  - Drug ineffective [Not Recovered/Not Resolved]

NARRATIVE: CASE EVENT DATE: 2020
